FAERS Safety Report 7542013-7 (Version None)
Quarter: 2011Q2

REPORT INFORMATION
  Report Type: 
  Country: None (occurrence: None)
  Receive Date: 20110613
  Receipt Date: 20110606
  Transmission Date: 20111010
  Serious: Yes (Death, Life-Threatening, Hospitalization)
  Sender: FDA-Public Use
  Company Number: US-SANOFI-AVENTIS-200417665US

PATIENT
  Age: 57 Year
  Sex: Female
  Weight: 39 kg

DRUGS (13)
  1. TARCEVA [Suspect]
     Route: 048
     Dates: start: 20040903, end: 20040903
  2. COLACE [Concomitant]
     Dosage: DOSE AS USED: UNK
  3. CELEXA [Concomitant]
     Dosage: DOSE AS USED: UNK
  4. CARBOPLATIN [Suspect]
     Route: 042
     Dates: start: 20040903, end: 20040924
  5. ZOFRAN [Concomitant]
     Dosage: DOSE AS USED: UNK
  6. ATIVAN [Concomitant]
     Dosage: DOSE AS USED: UNK
  7. PROCHLORPERAZINE TAB [Concomitant]
     Dosage: DOSE AS USED: UNK
  8. DOCETAXEL [Suspect]
     Route: 042
     Dates: start: 20040903, end: 20040924
  9. TARCEVA [Suspect]
     Route: 048
     Dates: start: 20041002
  10. HYDROCODONE BITARTRATE [Concomitant]
     Dosage: DOSE AS USED: UNK
  11. DECADRON [Concomitant]
     Dosage: DOSE AS USED: WITH CHEMO; UNKNOWN DOSE
  12. FERROUS SULFATE TAB [Concomitant]
     Dosage: DOSE AS USED: UNK
  13. PANTOPRAZOLE SODIUM [Concomitant]
     Dosage: DOSE AS USED: UNK

REACTIONS (20)
  - ABDOMINAL TENDERNESS [None]
  - MULTI-ORGAN FAILURE [None]
  - BLOOD GASES ABNORMAL [None]
  - HAEMATEMESIS [None]
  - CACHEXIA [None]
  - PALLOR [None]
  - ENTEROCOLITIS BACTERIAL [None]
  - TACHYCARDIA [None]
  - PYREXIA [None]
  - NAUSEA [None]
  - URINE OUTPUT DECREASED [None]
  - PRESYNCOPE [None]
  - DISSEMINATED INTRAVASCULAR COAGULATION [None]
  - MALAISE [None]
  - VOMITING [None]
  - DIARRHOEA [None]
  - WEIGHT DECREASED [None]
  - ABDOMINAL DISTENSION [None]
  - NEUTROPENIA [None]
  - HYPOTENSION [None]
